FAERS Safety Report 5150823-9 (Version None)
Quarter: 2006Q4

REPORT INFORMATION
  Report Type: 
  Country: None (occurrence: None)
  Receive Date: 20061108
  Receipt Date: 20061024
  Transmission Date: 20070319
  Serious: Yes (Hospitalization)
  Sender: FDA-Public Use
  Company Number: 30452

PATIENT
  Age: 77 Year
  Sex: Female

DRUGS (3)
  1. FLECAINIDE ACETATE [Suspect]
     Indication: ATRIAL FIBRILLATION
     Dosage: 200 MG (100 MG, 1 IN 12 HR) ORAL
     Route: 048
  2. ATENOLOL [Concomitant]
  3. ANTICOAGULANT [Concomitant]

REACTIONS (7)
  - ASTHENIA [None]
  - BRADYARRHYTHMIA [None]
  - ELECTROCARDIOGRAM QRS COMPLEX PROLONGED [None]
  - RENAL IMPAIRMENT [None]
  - SYNCOPE [None]
  - TACHYARRHYTHMIA [None]
  - TORSADE DE POINTES [None]
